FAERS Safety Report 9736130 (Version 1)
Quarter: 2013Q4

REPORT INFORMATION
  Report Type: Spontaneous
  Country: BR (occurrence: BR)
  Receive Date: 20131206
  Receipt Date: 20131206
  Transmission Date: 20140711
  Serious: Yes (Death)
  Sender: FDA-Public Use
  Company Number: PHHY2013BR139242

PATIENT
  Sex: Female
  Weight: 65 kg

DRUGS (6)
  1. ZILEDON [Suspect]
     Indication: DEMENTIA
     Dosage: 10 MG, QD
     Route: 048
  2. NEOTIAPIM [Suspect]
     Indication: DEMENTIA
     Dosage: 50 MG, QD
     Route: 048
  3. SPLENDIL [Concomitant]
     Dosage: 5 MG, UNK
     Route: 048
  4. GLIFAGE [Concomitant]
     Indication: DIABETES MELLITUS
     Dosage: 500 MG, QD
     Route: 048
  5. MONOCORDIL [Concomitant]
     Dosage: 40 MG, QD
     Route: 048
  6. VITORIN [Concomitant]
     Indication: BLOOD CHOLESTEROL ABNORMAL
     Route: 048

REACTIONS (1)
  - Myocardial infarction [Fatal]
